FAERS Safety Report 9741334 (Version 1)
Quarter: 2013Q4

REPORT INFORMATION
  Report Type: Spontaneous
  Country: FR (occurrence: FR)
  Receive Date: 20131209
  Receipt Date: 20131209
  Transmission Date: 20140711
  Serious: Yes (Hospitalization)
  Sender: FDA-Public Use
  Company Number: FR-PFIZER INC-2013345313

PATIENT
  Age: 8 Year
  Sex: Male

DRUGS (3)
  1. ZITHROMAX [Suspect]
     Indication: LUNG DISORDER
     Dosage: UNK
     Dates: start: 20130625, end: 20130630
  2. FLAGYL [Suspect]
     Indication: LUNG DISORDER
     Dosage: UNK
     Dates: start: 20130625, end: 20130630
  3. CEFOTAXIME [Suspect]
     Dosage: UNK
     Route: 042
     Dates: start: 20130625, end: 20130630

REACTIONS (1)
  - Dermatitis bullous [Recovered/Resolved]
